FAERS Safety Report 7343023-5 (Version None)
Quarter: 2011Q1

REPORT INFORMATION
  Report Type: 
  Country: None (occurrence: None)
  Receive Date: 20110301
  Receipt Date: 20110214
  Transmission Date: 20110831
  Serious: Yes (Other)
  Sender: FDA-Public Use
  Company Number: JP-2011-10147

PATIENT
  Age: 70 Year
  Sex: Male
  Weight: 49 kg

DRUGS (9)
  1. BACLOFEN [Concomitant]
  2. MAGNESIUM OXIDE (MAGNESIUM OXIDE) [Concomitant]
  3. LOSARTAN + HIDROCLOROTIAZIDA (HYDROCHLOROTHIAZIDE, LOSARTAN) [Concomitant]
  4. PLETAL [Suspect]
     Indication: INTERMITTENT CLAUDICATION
     Dosage: 100 MG MILLIGRAM(S), ORAL ; 100 MG MILLIGRAM(S), BID, ORAL
     Route: 048
     Dates: start: 20110119
  5. PLETAL [Suspect]
     Indication: INTERMITTENT CLAUDICATION
     Dosage: 100 MG MILLIGRAM(S), ORAL ; 100 MG MILLIGRAM(S), BID, ORAL
     Route: 048
     Dates: start: 20101217, end: 20110103
  6. LERCANIDIPINE [Concomitant]
  7. PIRACETAM (PIRACETAM) [Concomitant]
  8. AMITRIPTYLINE HYDROCHLORIDE [Concomitant]
  9. ASPIRIN [Concomitant]

REACTIONS (2)
  - TENDON RUPTURE [None]
  - HERNIA [None]
